FAERS Safety Report 5990569-8 (Version None)
Quarter: 2008Q4

REPORT INFORMATION
  Report Type: 
  Country: None (occurrence: None)
  Receive Date: 20081202
  Receipt Date: 20071130
  Transmission Date: 20090506
  Serious: Yes (Disabling)
  Sender: FDA-Public Use
  Company Number: WAES 0712USA00271

PATIENT
  Age: 60 Year
  Sex: Female

DRUGS (4)
  1. FOSAMAX [Suspect]
     Indication: OSTEOPOROSIS PROPHYLAXIS
     Dosage: DAILY/PO ; WKY/PO
     Route: 048
     Dates: end: 20071001
  2. FOSAMAX [Suspect]
     Indication: OSTEOPOROSIS PROPHYLAXIS
     Dosage: DAILY/PO ; WKY/PO
     Route: 048
     Dates: start: 19971101
  3. FOSAMAX PLUS D [Suspect]
     Dosage: PO
     Route: 048
     Dates: end: 20071007
  4. ESTROGENS (UNSPECIFIED) [Concomitant]

REACTIONS (1)
  - OSTEONECROSIS [None]
